FAERS Safety Report 15153997 (Version 1)
Quarter: 2018Q3

REPORT INFORMATION
  Report Type: Spontaneous
  Country: US (occurrence: US)
  Receive Date: 20180619
  Receipt Date: 20180619
  Transmission Date: 20181010
  Serious: No
  Sender: FDA-Public Use
  Company Number: None

PATIENT
  Age: 28 Year
  Weight: 76.5 kg

DRUGS (2)
  1. SUBOXONE 8/2 MG TABLET [Concomitant]
     Dates: start: 20180611, end: 20180619
  2. SUBOXONE [Suspect]
     Active Substance: BUPRENORPHINE HYDROCHLORIDE\NALOXONE HYDROCHLORIDE
     Dates: start: 20180611, end: 20180619

REACTIONS (5)
  - Retching [None]
  - Muscle spasms [None]
  - Throat irritation [None]
  - Nausea [None]
  - Hyperhidrosis [None]

NARRATIVE: CASE EVENT DATE: 20180611
